FAERS Safety Report 20368947 (Version 1)
Quarter: 2022Q1

REPORT INFORMATION
  Report Type: Spontaneous
  Country: OM (occurrence: OM)
  Receive Date: 20220124
  Receipt Date: 20220124
  Transmission Date: 20220424
  Serious: Yes (Other)
  Sender: FDA-Public Use
  Company Number: OM-BAYER-2022A005576

PATIENT
  Age: 40 Year
  Sex: Female

DRUGS (6)
  1. CIPROFLOXACIN [Suspect]
     Active Substance: CIPROFLOXACIN
     Indication: Pseudomonas infection
     Route: 048
  2. PIPERACILLIN [Concomitant]
     Active Substance: PIPERACILLIN
  3. SODIUM CHLORIDE [Concomitant]
     Active Substance: SODIUM CHLORIDE
  4. TAZOBACTAM [Concomitant]
     Active Substance: TAZOBACTAM
  5. ALBENDAZOLE [Concomitant]
     Active Substance: ALBENDAZOLE
  6. MOXIFLOXACIN [Concomitant]
     Active Substance: MOXIFLOXACIN

REACTIONS (2)
  - Pseudomonas infection [Recovered/Resolved]
  - Drug ineffective [None]
